FAERS Safety Report 9664168 (Version 1)
Quarter: 2013Q4

REPORT INFORMATION
  Report Type: Spontaneous
  Country: US (occurrence: None)
  Receive Date: 20131030
  Receipt Date: 20131030
  Transmission Date: 20140711
  Serious: Yes (Other)
  Sender: FDA-Public Use
  Company Number: None

PATIENT
  Age: 29 Year
  Sex: Male

DRUGS (1)
  1. AMPHETAMINE AND DEXTROAMPHETAMINE [Suspect]
     Indication: ATTENTION DEFICIT/HYPERACTIVITY DISORDER
     Dates: start: 2009

REACTIONS (6)
  - Malaise [None]
  - Lethargy [None]
  - Fatigue [None]
  - Asthenia [None]
  - Vision blurred [None]
  - Disturbance in attention [None]
